FAERS Safety Report 8581187 (Version 3)
Quarter: 2013Q4

REPORT INFORMATION
  Report Type: Report from Study
  Country: NL (occurrence: HK)
  Receive Date: 20120525
  Receipt Date: 20131210
  Transmission Date: 20140711
  Serious: Yes (Death)
  Sender: FDA-Public Use
  Company Number: PHHO2012HK007713

PATIENT
  Age: 66 Year
  Sex: Male
  Weight: 77.2 kg

DRUGS (8)
  1. ENALAPRIL [Suspect]
     Indication: CARDIAC FAILURE CHRONIC
     Dosage: 10 MG, BID
     Route: 048
     Dates: start: 20110520, end: 20120130
  2. CARVEDILOL [Suspect]
     Indication: CARDIAC FAILURE
     Dosage: 6.25 MG, BID
     Route: 048
     Dates: start: 20110323, end: 20120130
  3. FUROSEMIDE [Suspect]
     Indication: CARDIAC FAILURE
     Dosage: 40 MG, QD
     Route: 048
     Dates: start: 20110310, end: 20120130
  4. SIMVASTATIN [Suspect]
     Indication: HYPERLIPIDAEMIA
     Dosage: 10 MG, NOCTE
     Route: 048
     Dates: start: 20081203, end: 20120130
  5. FAMOTIDINE [Suspect]
     Indication: PROPHYLAXIS
     Dosage: 40 MG, BID
     Route: 048
     Dates: start: 20090116, end: 20120130
  6. VITAMIN B12 [Suspect]
     Indication: VITAMIN B12 DEFICIENCY
     Dosage: 50 MG, BID
     Route: 048
     Dates: start: 20080319, end: 20120130
  7. SENOKOT [Suspect]
     Indication: CONSTIPATION
     Dosage: 15 MG, NOCTE
     Route: 048
     Dates: start: 20090512, end: 20120130
  8. DIAMICRON [Suspect]
     Indication: DIABETES MELLITUS
     Dosage: UNK
     Route: 048
     Dates: start: 20100717, end: 20120130

REACTIONS (1)
  - Death [Fatal]
